FAERS Safety Report 14587420 (Version 2)
Quarter: 2018Q1

REPORT INFORMATION
  Report Type: Spontaneous
  Country: US (occurrence: US)
  Receive Date: 20180301
  Receipt Date: 20180314
  Transmission Date: 20180509
  Serious: Yes (Hospitalization)
  Sender: FDA-Public Use
  Company Number: US-ASTRAZENECA-2018SE23793

PATIENT
  Age: 62 Year
  Sex: Female

DRUGS (2)
  1. SYMBICORT [Suspect]
     Active Substance: BUDESONIDE\FORMOTEROL FUMARATE DIHYDRATE
     Indication: ASTHMA
     Dosage: 160/4.5 MCG, TWO INHALATIONS TWO TIMES A DAY
     Route: 055
     Dates: start: 2006
  2. SYMBICORT [Suspect]
     Active Substance: BUDESONIDE\FORMOTEROL FUMARATE DIHYDRATE
     Indication: CHRONIC OBSTRUCTIVE PULMONARY DISEASE
     Dosage: 160/4.5 MCG, TWO INHALATIONS TWO TIMES A DAY
     Route: 055
     Dates: start: 2006

REACTIONS (19)
  - Pollakiuria [Unknown]
  - Pneumonia [Unknown]
  - General physical condition abnormal [Unknown]
  - Device malfunction [Unknown]
  - Product packaging issue [Unknown]
  - Hypersensitivity [Unknown]
  - Myocardial infarction [Unknown]
  - Cataract [Unknown]
  - Dyspnoea [Unknown]
  - Ill-defined disorder [Unknown]
  - Renal disorder [Unknown]
  - Cough [Unknown]
  - Intentional product misuse [Unknown]
  - Visual impairment [Unknown]
  - Kidney infection [Unknown]
  - Drug hypersensitivity [Unknown]
  - Cardiac failure congestive [Unknown]
  - Sneezing [Unknown]
  - Lung infection [Recovered/Resolved]

NARRATIVE: CASE EVENT DATE: 2013
